FAERS Safety Report 15518091 (Version 1)
Quarter: 2018Q4

REPORT INFORMATION
  Report Type: Spontaneous
  Country: US (occurrence: US)
  Receive Date: 20181018
  Receipt Date: 20181018
  Transmission Date: 20190205
  Serious: Yes (Other)
  Sender: FDA-Public Use
  Company Number: None

PATIENT
  Age: 51 Year
  Sex: Female
  Weight: 58.5 kg

DRUGS (18)
  1. PROGESTERONE 200 MG DAILY [Concomitant]
     Dates: start: 20180101, end: 20181018
  2. MIGRANOL 4 MG/ML NASAL SPRAY PRN [Concomitant]
     Dates: start: 20160101, end: 20181018
  3. AIMOVIG [Suspect]
     Active Substance: ERENUMAB-AOOE
     Indication: MIGRAINE
     Dosage: ?          OTHER FREQUENCY:EVERY MONTH;?
     Route: 058
     Dates: start: 20180928, end: 20181018
  4. ESTRADIOL 0.125 MG CREAM [Concomitant]
     Dates: start: 20170101, end: 20181018
  5. LISINOPRIL 20 MG DAILY [Concomitant]
     Dates: start: 20030101, end: 20181018
  6. DICLOFENAC 50 MG PRN [Concomitant]
     Dates: start: 20180901, end: 20181018
  7. LAMOTRIGINE 50 MG BID [Concomitant]
     Dates: start: 20170101, end: 20181018
  8. BENADRYL 25-50 MG PRN [Concomitant]
     Dates: start: 20160101, end: 20181018
  9. CLONAZEPAM 1 MG BID [Concomitant]
     Dates: start: 20110101, end: 20181018
  10. CAMBIA 50 MG PRN [Concomitant]
     Dates: start: 20160101, end: 20181018
  11. TESTOSTERONE 15 MG CREAM [Concomitant]
     Dates: start: 20180101, end: 20181018
  12. METHOCARBAMOL 750 MG TID [Concomitant]
     Dates: start: 20160101, end: 20181018
  13. SEROQUEL 50 MG EVERY NIGHT [Concomitant]
     Dates: start: 20160101, end: 20181018
  14. METHYL-FOLATE 400 MCG DAILY [Concomitant]
     Dates: start: 20160101, end: 20181018
  15. VITAMIN B3 5,000 IU EVERY OTHER DAY [Concomitant]
     Dates: start: 20160101, end: 20181018
  16. KETOROLAC 30 MG/ML (IM) PRN [Concomitant]
     Dates: start: 20160101, end: 20181018
  17. PAXIL 20 MG DAILY [Concomitant]
     Dates: start: 20110101, end: 20181018
  18. COMPAZINE 10 MG PRN [Concomitant]
     Dates: start: 20150101, end: 20181018

REACTIONS (4)
  - Alopecia [None]
  - Therapy change [None]
  - Hair texture abnormal [None]
  - Trichorrhexis [None]

NARRATIVE: CASE EVENT DATE: 20181018
